FAERS Safety Report 9115341 (Version 1)
Quarter: 2013Q1

REPORT INFORMATION
  Report Type: Spontaneous
  Country: US (occurrence: None)
  Receive Date: 20130221
  Receipt Date: 20130221
  Transmission Date: 20140127
  Serious: No
  Sender: FDA-Public Use
  Company Number: None

PATIENT
  Sex: Male
  Weight: 45.36 kg

DRUGS (1)
  1. METHYLPHENIDATE (CONCERTA GENERIC) [Suspect]
     Indication: ATTENTION DEFICIT/HYPERACTIVITY DISORDER
     Dosage: 5MG XR. 1 QD, PO
     Route: 048
     Dates: start: 20111013, end: 20120208

REACTIONS (3)
  - Irritability [None]
  - Mood swings [None]
  - Educational problem [None]
